FAERS Safety Report 13995911 (Version 1)
Quarter: 2017Q3

REPORT INFORMATION
  Report Type: Spontaneous
  Country: DK (occurrence: DK)
  Receive Date: 20170921
  Receipt Date: 20170921
  Transmission Date: 20171128
  Serious: Yes (Other)
  Sender: FDA-Public Use
  Company Number: DK-ROCHE-1995264

PATIENT
  Sex: Male

DRUGS (1)
  1. XOLAIR [Suspect]
     Active Substance: OMALIZUMAB
     Indication: PRODUCT USED FOR UNKNOWN INDICATION
     Route: 065

REACTIONS (5)
  - Drug specific antibody present [Unknown]
  - Influenza [Not Recovered/Not Resolved]
  - Feeling abnormal [Unknown]
  - Anaphylactic reaction [Unknown]
  - Pulmonary function test decreased [Unknown]
